FAERS Safety Report 20363767 (Version 1)
Quarter: 2022Q1

REPORT INFORMATION
  Report Type: Spontaneous
  Country: US (occurrence: US)
  Receive Date: 20220121
  Receipt Date: 20220121
  Transmission Date: 20220423
  Serious: No
  Sender: FDA-Public Use
  Company Number: US-SUNOVION-2022SUN000094

PATIENT
  Sex: Male

DRUGS (1)
  1. APTIOM [Suspect]
     Active Substance: ESLICARBAZEPINE ACETATE
     Indication: Epilepsy
     Dosage: 1600 MG, QD (2 TABS OF 800MG PER DAY)
     Route: 048

REACTIONS (2)
  - Illness [Not Recovered/Not Resolved]
  - Malaise [Not Recovered/Not Resolved]
